FAERS Safety Report 4826685-3 (Version None)
Quarter: 2005Q4

REPORT INFORMATION
  Report Type: 
  Country: None (occurrence: None)
  Receive Date: 20051014
  Receipt Date: 20050805
  Transmission Date: 20060501
  Serious: No
  Sender: FDA-Public Use
  Company Number: 2005SP002255

PATIENT
  Age: 84 Year
  Sex: Female
  Weight: 42.6381 kg

DRUGS (2)
  1. LUNESTA [Suspect]
     Indication: INSOMNIA
     Dosage: 1 MG;HS;ORAL, 2 MG;HS;ORAL
     Route: 048
     Dates: start: 20050720, end: 20050722
  2. LUNESTA [Suspect]
     Indication: INSOMNIA
     Dosage: 1 MG;HS;ORAL, 2 MG;HS;ORAL
     Route: 048
     Dates: start: 20050724, end: 20050725

REACTIONS (2)
  - DRUG INEFFECTIVE [None]
  - MIDDLE INSOMNIA [None]
